FAERS Safety Report 7750313-0 (Version None)
Quarter: 2011Q3

REPORT INFORMATION
  Report Type: 
  Country: None (occurrence: None)
  Receive Date: 20110914
  Receipt Date: 20110901
  Transmission Date: 20111222
  Serious: Yes (Other)
  Sender: FDA-Public Use
  Company Number: US-ELI_LILLY_AND_COMPANY-US201103008943

PATIENT
  Sex: Female

DRUGS (19)
  1. FORTEO [Suspect]
     Indication: OSTEOPOROSIS
     Dosage: 20 UG, QD
     Route: 065
     Dates: start: 20110320
  2. FORTEO [Suspect]
     Dosage: 20 UG, QD
  3. ALBUTEROL [Concomitant]
     Dosage: 90 UG, UNK
  4. LORAZEPAM [Concomitant]
     Dosage: 5 MG, UNK
  5. FORTEO [Suspect]
     Dosage: 20 UG, QD
     Route: 065
  6. VITAMIN D [Concomitant]
     Dosage: 2000 IU, QD
  7. OSCAL [Concomitant]
     Dosage: 500 MG, QD
  8. DICYCLOVERINE HYDROCHLORIDE [Concomitant]
     Dosage: 40 MG, QD
  9. ASCORBIC ACID [Concomitant]
     Dosage: 500 MG, QD
  10. SIMVASTATIN [Concomitant]
     Dosage: 40 MG, QD
  11. FORTEO [Suspect]
     Dosage: 20 UG, QD
     Route: 065
  12. ADVAIR DISKUS 100/50 [Concomitant]
     Dosage: 1 UNK, UNK
  13. VITAMIN D [Concomitant]
     Dosage: 400 IU, QD
  14. ASPIRIN [Concomitant]
     Dosage: 1 DF, QD
  15. AMOXICILLIN [Concomitant]
     Dosage: 2000 MG, PRN
  16. FORTEO [Suspect]
     Dosage: 20 UG, QD
     Route: 065
  17. SERTRALINE HYDROCHLORIDE [Concomitant]
     Dosage: 100 MG, UNK
  18. FAMOTIDINE [Concomitant]
     Dosage: 20 MG, QD
  19. FORTEO [Suspect]
     Dosage: 20 UG, QD
     Route: 065

REACTIONS (17)
  - SCOTOMA [None]
  - DRUG DOSE OMISSION [None]
  - PAPILLOEDEMA [None]
  - AXILLARY PAIN [None]
  - DISCOMFORT [None]
  - ANXIETY [None]
  - OPTIC NERVE DISORDER [None]
  - BLINDNESS [None]
  - BACK PAIN [None]
  - PAIN [None]
  - VISUAL FIELD DEFECT [None]
  - BASAL CELL CARCINOMA [None]
  - CHEST PAIN [None]
  - BONE PAIN [None]
  - DYSPNOEA [None]
  - MUSCULOSKELETAL CHEST PAIN [None]
  - FATIGUE [None]
